FAERS Safety Report 12163512 (Version 1)
Quarter: 2016Q1

REPORT INFORMATION
  Report Type: Spontaneous
  Country: EC (occurrence: EC)
  Receive Date: 20160309
  Receipt Date: 20160309
  Transmission Date: 20160526
  Serious: Yes (Hospitalization)
  Sender: FDA-Public Use
  Company Number: EC-SEPTODONT-201603267

PATIENT

DRUGS (1)
  1. SEPTANEST 40 MG/ML CON ADRENALINA 1/100.000 [Suspect]
     Active Substance: ARTICAINE HYDROCHLORIDE\EPINEPHRINE BITARTRATE
     Indication: LOCAL ANAESTHESIA
     Dosage: LESS THAN ONE CARTRIDGE
     Route: 004
     Dates: start: 201602

REACTIONS (2)
  - Dermatitis allergic [Recovering/Resolving]
  - Adverse reaction [Recovering/Resolving]

NARRATIVE: CASE EVENT DATE: 201602
